FAERS Safety Report 14756911 (Version 2)
Quarter: 2018Q2

REPORT INFORMATION
  Report Type: Spontaneous
  Country: US (occurrence: US)
  Receive Date: 20180413
  Receipt Date: 20180502
  Transmission Date: 20180711
  Serious: No
  Sender: FDA-Public Use
  Company Number: US-BEH-2018089647

PATIENT
  Age: 57 Year
  Sex: Male

DRUGS (1)
  1. HIZENTRA [Suspect]
     Active Substance: HUMAN IMMUNOGLOBULIN G
     Indication: HUMORAL IMMUNE DEFECT
     Dosage: 10 G (50 ML), EVERY 10 DAYS
     Route: 058
     Dates: start: 20180222

REACTIONS (1)
  - Depression [Unknown]

NARRATIVE: CASE EVENT DATE: 20180404
